FAERS Safety Report 17975314 (Version 2)
Quarter: 2020Q3

REPORT INFORMATION
  Report Type: Spontaneous
  Country: US (occurrence: US)
  Receive Date: 20200702
  Receipt Date: 20200709
  Transmission Date: 20201103
  Serious: Yes (Other)
  Sender: FDA-Public Use
  Company Number: US-PFIZER INC-2020254557

PATIENT
  Age: 43 Year
  Sex: Female
  Weight: 45.36 kg

DRUGS (1)
  1. LOMOTIL [Suspect]
     Active Substance: ATROPINE SULFATE\DIPHENOXYLATE HYDROCHLORIDE
     Indication: CROHN^S DISEASE
     Dosage: 2.5MG/ 0.025MG EVERY 6 HOURS AS NEEDED
     Route: 048

REACTIONS (8)
  - Off label use [Unknown]
  - Hypertension [Not Recovered/Not Resolved]
  - Drug effective for unapproved indication [Unknown]
  - Drug dependence [Not Recovered/Not Resolved]
  - Headache [Unknown]
  - Osteoporosis [Not Recovered/Not Resolved]
  - Condition aggravated [Not Recovered/Not Resolved]
  - Product use in unapproved indication [Unknown]

NARRATIVE: CASE EVENT DATE: 1983
